FAERS Safety Report 13421743 (Version 2)
Quarter: 2017Q2

REPORT INFORMATION
  Report Type: Report from Study
  Country: JP (occurrence: JP)
  Receive Date: 20170410
  Receipt Date: 20170517
  Transmission Date: 20170830
  Serious: Yes (Other)
  Sender: FDA-Public Use
  Company Number: PHJP2017JP011277

PATIENT
  Age: 63 Year
  Sex: Male

DRUGS (1)
  1. ZYKADIA [Suspect]
     Active Substance: CERITINIB
     Indication: NON-SMALL CELL LUNG CANCER STAGE IV
     Dosage: 750 MG, QD
     Route: 048
     Dates: start: 20160923, end: 20161024

REACTIONS (6)
  - Non-small cell lung cancer stage IV [Not Recovered/Not Resolved]
  - Platelet count decreased [Recovered/Resolved]
  - Metastases to liver [Not Recovered/Not Resolved]
  - Malignant neoplasm progression [Not Recovered/Not Resolved]
  - Blood alkaline phosphatase increased [Not Recovered/Not Resolved]
  - Bone marrow infiltration [Not Recovered/Not Resolved]

NARRATIVE: CASE EVENT DATE: 20161018
